FAERS Safety Report 8789490 (Version 1)
Quarter: 2012Q4

REPORT INFORMATION
  Report Type: Spontaneous
  Country: US (occurrence: None)
  Receive Date: 20120906
  Receipt Date: 20120906
  Transmission Date: 20130627
  Serious: No
  Sender: FDA-Public Use
  Company Number: 120387

PATIENT
  Age: 79 Year
  Sex: Male
  Weight: 151.96 kg

DRUGS (2)
  1. SUPREP BOWEL PREP [Suspect]
     Dosage: 2 X 6OZ BOTTLE /1X /PO
     Route: 048
     Dates: start: 20120409
  2. DIURETIC (NAME UNKNOWN) [Concomitant]

REACTIONS (7)
  - Weight increased [None]
  - Haemoglobin decreased [None]
  - Haematocrit decreased [None]
  - Red blood cell count decreased [None]
  - Red blood cells urine positive [None]
  - Protein urine present [None]
  - Blood sodium decreased [None]
